FAERS Safety Report 6309583-8 (Version None)
Quarter: 2009Q3

REPORT INFORMATION
  Report Type: 
  Country: None (occurrence: None)
  Receive Date: 20090814
  Receipt Date: 20090807
  Transmission Date: 20100115
  Serious: Yes (Hospitalization)
  Sender: FDA-Public Use
  Company Number: JP-EISAI INC.-E3810-02994-SPO-JP

PATIENT
  Age: 91 Year
  Sex: Male

DRUGS (9)
  1. PARIET (RABEPRAZOLE) [Suspect]
     Route: 048
     Dates: start: 20081017, end: 20081118
  2. HYPEN [Concomitant]
     Route: 048
     Dates: end: 20081118
  3. SELBEX [Concomitant]
     Route: 048
     Dates: end: 20081118
  4. OPALMON [Concomitant]
     Route: 048
  5. CYANOCOBALAMIN [Concomitant]
     Route: 048
     Dates: end: 20081118
  6. ASPIRIN [Concomitant]
     Route: 048
  7. MEVALOTIN [Concomitant]
     Route: 048
     Dates: end: 20081118
  8. PROCYLIN [Concomitant]
     Route: 048
     Dates: end: 20081118
  9. NORVASC [Concomitant]
     Route: 048
     Dates: end: 20081118

REACTIONS (4)
  - CARDIAC FAILURE [None]
  - DISEASE PROGRESSION [None]
  - PNEUMONIA [None]
  - RESPIRATORY FAILURE [None]
